FAERS Safety Report 9519644 (Version 1)
Quarter: 2013Q3

REPORT INFORMATION
  Report Type: Spontaneous
  Country: US (occurrence: None)
  Receive Date: 20130911
  Receipt Date: 20130911
  Transmission Date: 20140515
  Serious: No
  Sender: FDA-Public Use
  Company Number: None

PATIENT
  Age: 75 Year
  Sex: Male

DRUGS (10)
  1. AFINITOR [Suspect]
     Route: 048
     Dates: start: 20130110, end: 20130812
  2. ASPIRIN [Concomitant]
  3. ASPIRIN [Concomitant]
  4. CREATOR [Concomitant]
  5. HYDROCHLORTHIAZIDE [Concomitant]
  6. METOPROLOL [Concomitant]
  7. XALATAN [Concomitant]
  8. TIMOLOL [Concomitant]
  9. CREON [Concomitant]
  10. PREDNISONE [Concomitant]

REACTIONS (1)
  - Lung disorder [None]
